FAERS Safety Report 7204270-6 (Version None)
Quarter: 2010Q4

REPORT INFORMATION
  Report Type: 
  Country: None (occurrence: None)
  Receive Date: 20101230
  Receipt Date: 20101217
  Transmission Date: 20110411
  Serious: Yes (Death, Hospitalization)
  Sender: FDA-Public Use
  Company Number: US-ROCHE-743355

PATIENT
  Sex: Female
  Weight: 47.7 kg

DRUGS (8)
  1. BEVACIZUMAB [Suspect]
     Indication: NON-SMALL CELL LUNG CANCER
     Dosage: ON DAY ONE.
     Route: 042
     Dates: start: 20100902
  2. PACLITAXEL [Suspect]
     Indication: NON-SMALL CELL LUNG CANCER
     Dosage: ON DAY ONE.
     Route: 042
     Dates: start: 20100902
  3. CARBOPLATIN [Suspect]
     Indication: NON-SMALL CELL LUNG CANCER
     Dosage: ON DAY ONE.
     Route: 042
     Dates: start: 20100902
  4. PRISTIQ [Concomitant]
     Indication: DEPRESSION
     Dates: start: 20090901
  5. ABILIFY [Concomitant]
     Indication: PSYCHOTIC DISORDER
     Dates: start: 20100120
  6. ALPRAZOLAM [Concomitant]
     Indication: ANXIETY
     Dates: start: 20100812
  7. LORTAB [Concomitant]
     Dates: start: 20100818
  8. SYMBICORT [Concomitant]
     Dates: start: 20100812

REACTIONS (3)
  - BRONCHOPNEUMONIA [None]
  - CEREBRAL ISCHAEMIA [None]
  - RESPIRATORY ARREST [None]
